FAERS Safety Report 15506096 (Version 1)
Quarter: 2018Q4

REPORT INFORMATION
  Report Type: Spontaneous
  Country: IT (occurrence: IT)
  Receive Date: 20181016
  Receipt Date: 20181016
  Transmission Date: 20190205
  Serious: Yes (Other)
  Sender: FDA-Public Use
  Company Number: IT-ACCORD-073215

PATIENT
  Age: 49 Year
  Sex: Female

DRUGS (10)
  1. METHYLPREDNISOLONE. [Interacting]
     Active Substance: METHYLPREDNISOLONE
     Indication: COGAN^S SYNDROME
  2. METHOTREXATE. [Suspect]
     Active Substance: METHOTREXATE
     Indication: COGAN^S SYNDROME
  3. EVOLOCUMAB [Interacting]
     Active Substance: EVOLOCUMAB
     Indication: PRODUCT USED FOR UNKNOWN INDICATION
     Dates: start: 201512
  4. UBIDECARENONE [Concomitant]
     Active Substance: UBIDECARENONE
     Dates: start: 2003
  5. SALICYLATE SODIUM/SALICYLIC ACID/SALICYLIC ACID TRIETHANOLAMINE [Concomitant]
     Dates: start: 2003
  6. FOLATE SODIUM/FOLIC ACID [Concomitant]
     Dates: start: 2003
  7. ASTAXANTHIN [Concomitant]
     Dates: start: 2003
  8. POLICOSANOL [Concomitant]
     Dates: start: 2003
  9. PANTOPRAZOLE/PANTOPRAZOLE SODIUM [Concomitant]
     Dates: start: 2003
  10. BERBERINE/BERBERINE HYDROCHLORIDE/BERBERINE SULFATE/BERBERINE TANNATE [Concomitant]
     Dates: start: 2003

REACTIONS (4)
  - Arteriosclerosis [Unknown]
  - Hyperlipidaemia [Unknown]
  - Off label use [Unknown]
  - Drug interaction [Unknown]

NARRATIVE: CASE EVENT DATE: 201512
